FAERS Safety Report 23519675 (Version 1)
Quarter: 2024Q1

REPORT INFORMATION
  Report Type: 
  Country: None (occurrence: None)
  Receive Date: 20240213
  Receipt Date: 20240213
  Transmission Date: 20240409
  Serious: No
  Sender: FDA-Public Use
  Company Number: US-ROCHE-3508333

PATIENT

DRUGS (1)
  1. AVASTIN [Suspect]
     Active Substance: BEVACIZUMAB
     Dosage: INFUSE 300MG INTRAVENOUSLY EVERY 21 DAY(S)

REACTIONS (2)
  - Death [None]
  - Off label use [None]

NARRATIVE: CASE EVENT DATE: 20230613
